FAERS Safety Report 10812747 (Version 1)
Quarter: 2015Q1

REPORT INFORMATION
  Report Type: Report from Study
  Country: US (occurrence: US)
  Receive Date: 20150218
  Receipt Date: 20150218
  Transmission Date: 20150721
  Serious: No
  Sender: FDA-Public Use
  Company Number: US-ABBVIE-14K-163-1275613-00

PATIENT
  Age: 59 Year
  Sex: Female

DRUGS (12)
  1. HUMIRA [Suspect]
     Active Substance: ADALIMUMAB
     Dates: start: 20140815, end: 20140815
  2. PROBIOTICS NOS [Concomitant]
     Active Substance: PROBIOTICS NOS
     Indication: SUPPLEMENTATION THERAPY
  3. FISH OIL [Concomitant]
     Active Substance: FISH OIL
     Indication: SUPPLEMENTATION THERAPY
  4. HUMIRA [Suspect]
     Active Substance: ADALIMUMAB
     Indication: CROHN^S DISEASE
     Dates: start: 20140801, end: 20140801
  5. AMITRIPTYLINE [Concomitant]
     Active Substance: AMITRIPTYLINE
     Indication: IRRITABLE BOWEL SYNDROME
  6. LIBRAX [Suspect]
     Active Substance: CHLORDIAZEPOXIDE HYDROCHLORIDE\CLIDINIUM BROMIDE
     Indication: GASTROINTESTINAL DISORDER
     Dosage: 2.5-5 MG
     Dates: start: 201408
  7. TRICOR [Concomitant]
     Active Substance: FENOFIBRATE
     Indication: BLOOD CHOLESTEROL INCREASED
  8. ENTOCORT [Concomitant]
     Active Substance: BUDESONIDE
     Indication: CROHN^S DISEASE
     Dosage: 2 TO 3 MG
  9. IRON [Concomitant]
     Active Substance: IRON
     Indication: ANAEMIA
  10. HUMIRA [Suspect]
     Active Substance: ADALIMUMAB
  11. VITAMIN D3 [Concomitant]
     Active Substance: CHOLECALCIFEROL
     Indication: SUPPLEMENTATION THERAPY
  12. CALCIUM [Concomitant]
     Active Substance: CALCIUM
     Indication: SUPPLEMENTATION THERAPY

REACTIONS (8)
  - Discomfort [Recovered/Resolved]
  - Urinary retention [Recovered/Resolved]
  - Micturition urgency [Recovered/Resolved]
  - Dysuria [Recovered/Resolved]
  - Bladder dilatation [Recovered/Resolved]
  - Urinary tract infection [Recovered/Resolved]
  - Somnolence [Unknown]
  - Faecal volume increased [Recovered/Resolved]

NARRATIVE: CASE EVENT DATE: 201408
